FAERS Safety Report 24198776 (Version 2)
Quarter: 2025Q4

REPORT INFORMATION
  Report Type: Spontaneous
  Country: US (occurrence: US)
  Receive Date: 20240812
  Receipt Date: 20251014
  Transmission Date: 20260117
  Serious: Yes (Hospitalization)
  Sender: NOVO NORDISK
  Company Number: US-NOVOPROD-1266417

PATIENT
  Age: 46 Year
  Sex: Female
  Weight: 77.098 kg

DRUGS (11)
  1. OZEMPIC [Suspect]
     Active Substance: SEMAGLUTIDE
     Dosage: 0.5 MG, QW
     Dates: start: 20220810, end: 20220924
  2. OZEMPIC [Suspect]
     Active Substance: SEMAGLUTIDE
     Indication: Weight control
     Dosage: 0.25 MG, QW
     Dates: start: 20220622, end: 20220803
  3. MOUNJARO [Suspect]
     Active Substance: TIRZEPATIDE
     Dosage: 7.5 MG, QW
     Dates: start: 20221212, end: 20230508
  4. MOUNJARO [Suspect]
     Active Substance: TIRZEPATIDE
     Indication: Weight control
     Dosage: 5 MG, QW
     Dates: start: 20221017, end: 20221205
  5. DICLOFENAC [Concomitant]
     Active Substance: DICLOFENAC
     Indication: Pain
     Dosage: UNK
     Dates: start: 20220501, end: 20221001
  6. ADVIL [Concomitant]
     Active Substance: IBUPROFEN
     Indication: Headache
     Dosage: UNK
     Dates: start: 20220101
  7. LINZESS [Concomitant]
     Active Substance: LINACLOTIDE
     Indication: Constipation
     Dosage: UNK
     Dates: start: 20220915, end: 20230508
  8. VITAMIN B [Concomitant]
     Active Substance: VITAMIN B
     Indication: Routine health maintenance
     Dosage: UNK
     Dates: start: 20220101
  9. VITAMIN C [Concomitant]
     Active Substance: ASCORBIC ACID
     Indication: Routine health maintenance
     Dosage: UNK
     Dates: start: 20220101
  10. VITAMIN D NOS [Concomitant]
     Active Substance: CHOLECALCIFEROL\ERGOCALCIFEROL
     Indication: Routine health maintenance
     Dosage: UNK
     Dates: start: 20220101
  11. CALCIUM [Concomitant]
     Active Substance: CALCIUM
     Indication: Routine health maintenance
     Dosage: UNK
     Dates: start: 20220101

REACTIONS (9)
  - Decreased appetite [Not Recovered/Not Resolved]
  - Cholelithiasis [Recovered/Resolved]
  - Abdominal pain upper [Not Recovered/Not Resolved]
  - Diarrhoea [Not Recovered/Not Resolved]
  - Nausea [Not Recovered/Not Resolved]
  - Vomiting [Recovered/Resolved]
  - Depression [Unknown]
  - Anxiety [Unknown]
  - Off label use [Unknown]

NARRATIVE: CASE EVENT DATE: 20220601
